FAERS Safety Report 5571544-4 (Version None)
Quarter: 2007Q4

REPORT INFORMATION
  Report Type: 
  Country: None (occurrence: None)
  Receive Date: 20071221
  Receipt Date: 20071217
  Transmission Date: 20080405
  Serious: Yes (Hospitalization)
  Sender: FDA-Public Use
  Company Number: US-ELI_LILLY_AND_COMPANY-US200711003040

PATIENT
  Sex: Male

DRUGS (14)
  1. HUMATROPE [Suspect]
     Indication: BLOOD GROWTH HORMONE DECREASED
     Dosage: 0.2 MG, UNKNOWN
     Route: 065
  2. COUMADIN [Concomitant]
     Indication: ATRIAL FIBRILLATION
     Dates: end: 20070901
  3. COUMADIN [Concomitant]
     Dates: start: 20070901
  4. IPRATROPIUM BROMIDE [Concomitant]
     Dosage: 0.5 MG, EVERY 6 HRS
     Route: 055
  5. COLACE [Concomitant]
     Dosage: 100 MG, 2/D
     Route: 048
  6. CLONAZEPAM [Concomitant]
     Dosage: 0.5 MG, EACH MORNING
     Route: 048
  7. CLONAZEPAM [Concomitant]
     Dosage: 1 MG, EACH EVENING
     Route: 048
  8. LANTUS [Concomitant]
     Dosage: 50 MG, EACH EVENING
  9. NEURONTIN [Concomitant]
     Dosage: 300 MG, 3/D
     Route: 048
  10. INSULIN INJECTION [Concomitant]
     Dosage: UNK, AS NEEDED
  11. INSULIN [Concomitant]
     Dosage: 55 U, EACH EVENING
  12. INSULIN [Concomitant]
     Dosage: 50 U, EACH MORNING
  13. MIRTAZAPINE [Concomitant]
     Dosage: 30 MG, EACH EVENING
  14. DIPHENHYDRAMINE HCL [Concomitant]
     Indication: INSOMNIA
     Dosage: 25 MG, EACH MORNING
     Route: 048

REACTIONS (1)
  - PERICARDITIS CONSTRICTIVE [None]
